FAERS Safety Report 17164404 (Version 1)
Quarter: 2019Q4

REPORT INFORMATION
  Report Type: Spontaneous
  Country: SE (occurrence: SE)
  Receive Date: 20191217
  Receipt Date: 20191217
  Transmission Date: 20200122
  Serious: Yes (Hospitalization)
  Sender: FDA-Public Use
  Company Number: SE-009507513-1912SWE004517

PATIENT
  Age: 58 Year
  Sex: Male

DRUGS (2)
  1. MIRTAZAPINE. [Suspect]
     Active Substance: MIRTAZAPINE
     Dosage: 150 MILLIGRAM
     Route: 048
     Dates: start: 20180817, end: 20180817
  2. PROPAVAN [Suspect]
     Active Substance: PROPIOMAZINE
     Dosage: 500 MILLIGRAM
     Route: 048
     Dates: start: 20180817, end: 20180817

REACTIONS (2)
  - Intentional self-injury [Unknown]
  - Intentional overdose [Unknown]

NARRATIVE: CASE EVENT DATE: 20180817
